FAERS Safety Report 6811935-4 (Version None)
Quarter: 2010Q2

REPORT INFORMATION
  Report Type: 
  Country: None (occurrence: None)
  Receive Date: 20100628
  Receipt Date: 20100622
  Transmission Date: 20101027
  Serious: Yes (Death)
  Sender: FDA-Public Use
  Company Number: 2010SP035531

PATIENT
  Age: 35 Year
  Sex: Male

DRUGS (5)
  1. REMERON [Suspect]
     Indication: DEPRESSION
     Dosage: 15 MG; ; PO, 30 MG; ; PO, 45 MG; ; PO
     Route: 048
     Dates: start: 20100101, end: 20100520
  2. REMERON [Suspect]
     Indication: DEPRESSION
     Dosage: 15 MG; ; PO, 30 MG; ; PO, 45 MG; ; PO
     Route: 048
     Dates: start: 20100423
  3. REMERON [Suspect]
     Indication: DEPRESSION
     Dosage: 15 MG; ; PO, 30 MG; ; PO, 45 MG; ; PO
     Route: 048
     Dates: start: 20100521
  4. HALCION [Concomitant]
  5. DEPAS [Concomitant]

REACTIONS (1)
  - COMPLETED SUICIDE [None]
